FAERS Safety Report 7652300-X (Version None)
Quarter: 2011Q3

REPORT INFORMATION
  Report Type: 
  Country: None (occurrence: None)
  Receive Date: 20110803
  Receipt Date: 20110729
  Transmission Date: 20111222
  Serious: Yes (Hospitalization, Other)
  Sender: FDA-Public Use
  Company Number: US-BAYER-2011-039301

PATIENT
  Age: 32 Year
  Sex: Female
  Weight: 57 kg

DRUGS (2)
  1. MIRENA [Suspect]
     Indication: CONTRACEPTION
     Dosage: 20 ?G, CONT
     Route: 015
     Dates: start: 20110309, end: 20110505
  2. LIDOCAINE [Concomitant]
     Dosage: UNK
     Dates: start: 20110309

REACTIONS (6)
  - ANAEMIA [None]
  - DEVICE DISLOCATION [None]
  - PROCEDURAL HEADACHE [None]
  - DEVICE DIFFICULT TO USE [None]
  - OPERATIVE HAEMORRHAGE [None]
  - ECTOPIC PREGNANCY WITH INTRAUTERINE DEVICE [None]
